FAERS Safety Report 19110008 (Version 3)
Quarter: 2021Q3

REPORT INFORMATION
  Report Type: Spontaneous
  Country: US (occurrence: US)
  Receive Date: 20210409
  Receipt Date: 20210929
  Transmission Date: 20211014
  Serious: Yes (Hospitalization)
  Sender: FDA-Public Use
  Company Number: US-JNJFOC-20210404331

PATIENT
  Age: 43 Year
  Sex: Female
  Weight: 169 kg

DRUGS (1)
  1. REMICADE [Suspect]
     Active Substance: INFLIXIMAB
     Indication: CROHN^S DISEASE
     Route: 042
     Dates: start: 2017, end: 20210825

REACTIONS (2)
  - Thrombophlebitis [Recovering/Resolving]
  - Drug specific antibody [Unknown]

NARRATIVE: CASE EVENT DATE: 20200420
